FAERS Safety Report 5595678-3 (Version None)
Quarter: 2008Q1

REPORT INFORMATION
  Report Type: 
  Country: None (occurrence: None)
  Receive Date: 20080118
  Receipt Date: 20080109
  Transmission Date: 20080703
  Serious: Yes (Hospitalization, Other)
  Sender: FDA-Public Use
  Company Number: US-AMGEN-QUU260129

PATIENT
  Sex: Female

DRUGS (2)
  1. ENBREL [Suspect]
     Indication: RHEUMATOID ARTHRITIS
     Route: 058
     Dates: start: 20030101, end: 20030301
  2. PLAQUENIL [Concomitant]
     Dates: start: 19950101

REACTIONS (11)
  - ANAEMIA [None]
  - BACK PAIN [None]
  - DEPRESSION [None]
  - FEELING ABNORMAL [None]
  - LUPUS-LIKE SYNDROME [None]
  - NAUSEA [None]
  - PALPITATIONS [None]
  - PLATELET COUNT DECREASED [None]
  - RHEUMATOID ARTHRITIS [None]
  - SOMNOLENCE [None]
  - WHITE BLOOD CELL COUNT DECREASED [None]
